FAERS Safety Report 22335034 (Version 1)
Quarter: 2023Q2

REPORT INFORMATION
  Report Type: Spontaneous
  Country: US (occurrence: US)
  Receive Date: 20230518
  Receipt Date: 20230518
  Transmission Date: 20230721
  Serious: No
  Sender: FDA-Public Use
  Company Number: US-Accord-302462

PATIENT
  Age: 47 Year
  Sex: Female

DRUGS (1)
  1. FINGOLIMOD [Suspect]
     Active Substance: FINGOLIMOD
     Indication: Product used for unknown indication

REACTIONS (7)
  - Hypertension [Unknown]
  - Cough [Unknown]
  - Headache [Unknown]
  - Chills [Unknown]
  - Asthenia [Unknown]
  - Cardiovascular disorder [Unknown]
  - Respiratory tract irritation [Unknown]
